FAERS Safety Report 24912566 (Version 1)
Quarter: 2025Q1

REPORT INFORMATION
  Report Type: Spontaneous
  Country: HU (occurrence: HU)
  Receive Date: 20250131
  Receipt Date: 20250131
  Transmission Date: 20250409
  Serious: Yes (Death)
  Sender: VERTEX
  Company Number: HU-VERTEX PHARMACEUTICALS-2025-001375

PATIENT

DRUGS (1)
  1. ORKAMBI [Suspect]
     Active Substance: IVACAFTOR\LUMACAFTOR
     Indication: Cystic fibrosis
     Route: 048
     Dates: start: 2021

REACTIONS (1)
  - Death [Fatal]
